FAERS Safety Report 5955336-X (Version None)
Quarter: 2008Q4

REPORT INFORMATION
  Report Type: 
  Country: None (occurrence: None)
  Receive Date: 20081112
  Receipt Date: 20081103
  Transmission Date: 20090506
  Serious: Yes (Other)
  Sender: FDA-Public Use
  Company Number: 2008AP002017

PATIENT
  Age: 55 Year
  Sex: Male

DRUGS (3)
  1. PAROXETINE HCL [Suspect]
     Dosage: 20 MG;QD
     Dates: start: 20010517, end: 20021201
  2. DIAZEPAM [Concomitant]
  3. PROPRANOLOL [Concomitant]

REACTIONS (56)
  - ABNORMAL SLEEP-RELATED EVENT [None]
  - AGITATION [None]
  - AGORAPHOBIA [None]
  - ANXIETY [None]
  - BALANCE DISORDER [None]
  - BIPOLAR DISORDER [None]
  - BITE [None]
  - CONDITION AGGRAVATED [None]
  - CONFUSIONAL STATE [None]
  - DEPERSONALISATION [None]
  - DEPRESSION [None]
  - DEREALISATION [None]
  - DIABETIC AUTONOMIC NEUROPATHY [None]
  - DIARRHOEA [None]
  - DISEASE RECURRENCE [None]
  - DISORIENTATION [None]
  - DIZZINESS [None]
  - DRUG WITHDRAWAL SYNDROME [None]
  - DYSAESTHESIA [None]
  - DYSKINESIA [None]
  - DYSTHYMIC DISORDER [None]
  - EMOTIONAL DISTRESS [None]
  - FEAR [None]
  - FEELING ABNORMAL [None]
  - GASTROOESOPHAGEAL REFLUX DISEASE [None]
  - HOMICIDAL IDEATION [None]
  - HYPERHIDROSIS [None]
  - HYPERPHAGIA [None]
  - INSOMNIA [None]
  - MENINGIOMA [None]
  - MOOD SWINGS [None]
  - MYALGIA [None]
  - MYOCLONUS [None]
  - NAUSEA [None]
  - NO THERAPEUTIC RESPONSE [None]
  - OVERDOSE [None]
  - PANIC REACTION [None]
  - PARADOXICAL DRUG REACTION [None]
  - PARAESTHESIA [None]
  - PARANOID PERSONALITY DISORDER [None]
  - PERIPHERAL SENSORY NEUROPATHY [None]
  - PSYCHOMOTOR HYPERACTIVITY [None]
  - SECONDARY HYPOGONADISM [None]
  - SELF-INJURIOUS IDEATION [None]
  - SENSORY DISTURBANCE [None]
  - SKIN LACERATION [None]
  - SLEEP DISORDER [None]
  - SPINAL OSTEOARTHRITIS [None]
  - SUICIDAL IDEATION [None]
  - THINKING ABNORMAL [None]
  - TINNITUS [None]
  - TONGUE DISORDER [None]
  - TREATMENT NONCOMPLIANCE [None]
  - VERTIGO [None]
  - VESTIBULAR DISORDER [None]
  - WEIGHT DECREASED [None]
